FAERS Safety Report 26164121 (Version 1)
Quarter: 2025Q4

REPORT INFORMATION
  Report Type: Spontaneous
  Country: US (occurrence: None)
  Receive Date: 20251216
  Receipt Date: 20251216
  Transmission Date: 20260118
  Serious: Yes (Disabling)
  Sender: FDA-CTU
  Company Number: None

PATIENT
  Age: 63 Year
  Sex: Female
  Weight: 53.55 kg

DRUGS (11)
  1. NITROFURANTOIN [Suspect]
     Active Substance: NITROFURANTOIN
     Indication: Urinary tract infection
     Dosage: FREQUENCY : DAILY;
     Route: 048
     Dates: end: 20250721
  2. TAGAMET [Suspect]
     Active Substance: CIMETIDINE
  3. ZYRTEC [Suspect]
     Active Substance: CETIRIZINE HYDROCHLORIDE
  4. MONTELUKAST SODIUM [Suspect]
     Active Substance: MONTELUKAST SODIUM
  5. OMEPRAZOLE [Suspect]
     Active Substance: OMEPRAZOLE
  6. XOLAIR SHOTS [Concomitant]
  7. VITAMIN C [Suspect]
     Active Substance: ASCORBIC ACID
  8. CHEWABLE CALCIUM WITH VITANIN D3 [Concomitant]
  9. D-MANNOS [Concomitant]
  10. CALM MAGNESIUM CITRATE [Concomitant]
  11. MIRALAX [Concomitant]
     Active Substance: POLYETHYLENE GLYCOL 3350

REACTIONS (4)
  - Eosinophilic oesophagitis [None]
  - Chest pain [None]
  - Pulmonary eosinophilia [None]
  - Urticaria [None]

NARRATIVE: CASE EVENT DATE: 20250723
